FAERS Safety Report 7819641-4 (Version None)
Quarter: 2011Q4

REPORT INFORMATION
  Report Type: 
  Country: None (occurrence: None)
  Receive Date: 20111013
  Receipt Date: 20110930
  Transmission Date: 20120403
  Serious: Yes (Other)
  Sender: FDA-Public Use
  Company Number: 1000023904

PATIENT
  Age: 74 Year
  Sex: Male

DRUGS (8)
  1. YOKU-KAN-SAN (HERBAL EXTRACT NOS) (HERBAL EXTRACT NOS) [Concomitant]
  2. MEMANTINE [Suspect]
     Indication: DEMENTIA ALZHEIMER'S TYPE
     Dosage: 20 MG (20 MG, 1 IN 1 D),ORAL
     Route: 048
     Dates: start: 20110712, end: 20110811
  3. ARICEPT [Suspect]
     Indication: DEMENTIA ALZHEIMER'S TYPE
     Dosage: 5 MG (5 MG,1 IN 1 D),ORAL
     Route: 048
     Dates: start: 20110131, end: 20110811
  4. LYRICA [Suspect]
     Indication: PAIN
     Dosage: 300 MG (150 MG,2 IN 1 D),ORAL
     Route: 048
     Dates: start: 20110801, end: 20110811
  5. METHYCOBAL (MECOBALAMIN) (MECOBALAMIN) [Concomitant]
  6. MEMANTINE [Suspect]
     Indication: DEMENTIA ALZHEIMER'S TYPE
     Dosage: 5 MG (5 MG,1 IN 1 D),ORAL ; INCREASED DOSE,ORAL
     Route: 048
     Dates: start: 20110621, end: 20110601
  7. MEMANTINE [Suspect]
     Indication: DEMENTIA ALZHEIMER'S TYPE
     Dosage: 5 MG (5 MG,1 IN 1 D),ORAL ; INCREASED DOSE,ORAL
     Route: 048
     Dates: start: 20110601, end: 20110711
  8. GRAMALIL (TIAPRIDE HYDROCHLORIDE) [Suspect]
     Indication: DEMENTIA ALZHEIMER'S TYPE
     Dosage: 25 MG (25 MG,1 IN 1 D),ORAL
     Route: 048
     Dates: start: 20110425, end: 20110811

REACTIONS (1)
  - RHABDOMYOLYSIS [None]
